FAERS Safety Report 17638464 (Version 1)
Quarter: 2020Q2

REPORT INFORMATION
  Report Type: Spontaneous
  Country: RO (occurrence: RO)
  Receive Date: 20200407
  Receipt Date: 20200407
  Transmission Date: 20200713
  Serious: Yes (Hospitalization, Other)
  Sender: FDA-Public Use
  Company Number: RO-ROCHE-2573900

PATIENT
  Sex: Female

DRUGS (1)
  1. TECENTRIQ [Suspect]
     Active Substance: ATEZOLIZUMAB
     Indication: PRODUCT USED FOR UNKNOWN INDICATION
     Route: 065
     Dates: end: 20200325

REACTIONS (6)
  - Blood creatinine increased [Unknown]
  - Renal failure [Not Recovered/Not Resolved]
  - Faecal vomiting [Unknown]
  - Creatinine renal clearance abnormal [Unknown]
  - Haemoglobin decreased [Unknown]
  - General physical health deterioration [Unknown]
